FAERS Safety Report 9999710 (Version 1)
Quarter: 2014Q1

REPORT INFORMATION
  Report Type: Spontaneous
  Country: US (occurrence: US)
  Receive Date: 20140312
  Receipt Date: 20140312
  Transmission Date: 20141002
  Serious: No
  Sender: FDA-Public Use
  Company Number: US-BAYER-2014-037741

PATIENT
  Age: 90 Year
  Sex: Male
  Weight: 73.47 kg

DRUGS (1)
  1. ALEVE GELCAPS [Suspect]
     Indication: ARTHRITIS
     Dosage: 3 DF, TABLETS IN THE MORNING AND 1 TABLET
     Route: 048
     Dates: start: 20140308, end: 20140309

REACTIONS (1)
  - Drug ineffective [None]
